FAERS Safety Report 8833857 (Version 2)
Quarter: 2012Q4

REPORT INFORMATION
  Report Type: 
  Country: US (occurrence: US)
  Receive Date: 20121011
  Receipt Date: 20121024
  Transmission Date: 20130627
  Serious: Yes (Death, Hospitalization)
  Sender: FDA-Public Use
  Company Number: US-009507513-1210USA004433

PATIENT
  Sex: Male

DRUGS (1)
  1. VICTRELIS [Suspect]
     Indication: HEPATITIS B
     Dosage: 800 mg, tid
     Route: 048

REACTIONS (2)
  - Death [Fatal]
  - Malaise [Fatal]
